FAERS Safety Report 9984688 (Version 1)
Quarter: 2014Q1

REPORT INFORMATION
  Report Type: Spontaneous
  Country: US (occurrence: US)
  Receive Date: 20140307
  Receipt Date: 20140307
  Transmission Date: 20141002
  Serious: No
  Sender: FDA-Public Use
  Company Number: US-GLAXOSMITHKLINE-A1059269A

PATIENT
  Age: 62 Year
  Sex: Male

DRUGS (1)
  1. BREO ELLIPTA [Suspect]
     Indication: CHRONIC OBSTRUCTIVE PULMONARY DISEASE
     Dosage: 1PUFF PER DAY
     Route: 055
     Dates: start: 201401

REACTIONS (4)
  - Oral pain [Unknown]
  - Glossodynia [Unknown]
  - Oral mucosal erythema [Unknown]
  - Tongue discolouration [Unknown]
